FAERS Safety Report 14887944 (Version 1)
Quarter: 2018Q2

REPORT INFORMATION
  Report Type: Spontaneous
  Country: BY (occurrence: BY)
  Receive Date: 20180513
  Receipt Date: 20180513
  Transmission Date: 20180711
  Serious: Yes (Other)
  Sender: FDA-Public Use
  Company Number: BY-ROCHE-2120830

PATIENT
  Age: 70 Year
  Sex: Female

DRUGS (5)
  1. OXALIPLATIN. [Concomitant]
     Active Substance: OXALIPLATIN
     Indication: DIFFUSE LARGE B-CELL LYMPHOMA
     Route: 065
     Dates: start: 20171103
  2. MABTHERA [Suspect]
     Active Substance: RITUXIMAB
     Dosage: 11-12 COURSE - RITUXIMAB + BENDAMUSTIN ;ONGOING: UNKNOWN
     Route: 042
     Dates: start: 20171103
  3. BENDAMUSTINE [Concomitant]
     Active Substance: BENDAMUSTINE
     Indication: DIFFUSE LARGE B-CELL LYMPHOMA
     Dosage: 11-12 COURSE - RITUXIMAB + BENDAMUSTIN ;ONGOING: UNKNOWN
     Route: 065
  4. GEMCITABINE [Concomitant]
     Active Substance: GEMCITABINE\GEMCITABINE HYDROCHLORIDE
     Indication: DIFFUSE LARGE B-CELL LYMPHOMA
     Dosage: 5 - 10 COURSE WAS RITUXIMAB-GEMOX ;ONGOING: UNKNOWN
     Route: 065
     Dates: start: 20171103
  5. MABTHERA [Suspect]
     Active Substance: RITUXIMAB
     Indication: DIFFUSE LARGE B-CELL LYMPHOMA
     Dosage: 5 - 10 COURSE WAS RITUXIMAB-GEMOX ;ONGOING: UNKNOWN
     Route: 042

REACTIONS (8)
  - Blood pressure decreased [Not Recovered/Not Resolved]
  - Body temperature increased [Recovered/Resolved]
  - Disease progression [Not Recovered/Not Resolved]
  - Tachycardia [Not Recovered/Not Resolved]
  - Mood altered [Not Recovered/Not Resolved]
  - Rash [Recovered/Resolved]
  - Thrombocytopenia [Not Recovered/Not Resolved]
  - Pruritus [Recovered/Resolved]

NARRATIVE: CASE EVENT DATE: 201804
